FAERS Safety Report 11295075 (Version 1)
Quarter: 2015Q3

REPORT INFORMATION
  Report Type: Spontaneous
  Country: US (occurrence: None)
  Receive Date: 20150722
  Receipt Date: 20150722
  Transmission Date: 20151125
  Serious: No
  Sender: FDA-Public Use
  Company Number: None

PATIENT
  Age: 43 Year
  Sex: Female
  Weight: 72.58 kg

DRUGS (7)
  1. VITAMIN B COMPLEX [Concomitant]
     Active Substance: CYANOCOBALAMIN\DEXPANTHENOL\NIACINAMIDE\PYRIDOXINE HYDROCHLORIDE\RIBOFLAVIN 5^-PHOSPHATE SODIUM\THIAMINE HYDROCHLORIDE\VITAMIN B COMPLEX
  2. DULOXETINE 60MG ACTAVIS [Suspect]
     Active Substance: DULOXETINE
     Indication: PAIN
     Route: 048
     Dates: start: 20150428, end: 20150721
  3. LEVOTHYROXINE. [Concomitant]
     Active Substance: LEVOTHYROXINE
  4. HORMONE TROCHE (ESTROGEN/PROGESTERONE/TESTOSTERONE) [Concomitant]
  5. VITAMIN D [Concomitant]
     Active Substance: CHOLECALCIFEROL
  6. IBUPROFEN. [Concomitant]
     Active Substance: IBUPROFEN
  7. DULOXETINE 60MG ACTAVIS [Suspect]
     Active Substance: DULOXETINE
     Indication: DEPRESSION
     Route: 048
     Dates: start: 20150428, end: 20150721

REACTIONS (9)
  - Product quality issue [None]
  - Hyperhidrosis [None]
  - Agitation [None]
  - Nightmare [None]
  - Drug effect incomplete [None]
  - Bruxism [None]
  - Drug withdrawal syndrome [None]
  - Drug dose omission [None]
  - Product substitution issue [None]

NARRATIVE: CASE EVENT DATE: 20150501
